FAERS Safety Report 21129442 (Version 1)
Quarter: 2022Q3

REPORT INFORMATION
  Report Type: Spontaneous
  Country: US (occurrence: US)
  Receive Date: 20220725
  Receipt Date: 20220725
  Transmission Date: 20221026
  Serious: No
  Sender: FDA-Public Use
  Company Number: US-drreddys-SPO/USA/22/0152231

PATIENT
  Age: 14 Year

DRUGS (1)
  1. ZENATANE [Suspect]
     Active Substance: ISOTRETINOIN
     Indication: Acne
     Dosage: RMA ISSUE DATE: 25 FEBRUARY 2022 03:38:04 PM, 18 APRIL 2022 08:21:39 PM AND 13 JUNE 2022 11:57:12 AM

REACTIONS (1)
  - Treatment noncompliance [Unknown]
